FAERS Safety Report 4519767-7 (Version None)
Quarter: 2004Q4

REPORT INFORMATION
  Report Type: 
  Country: None (occurrence: None)
  Receive Date: 20041207
  Receipt Date: 20041028
  Transmission Date: 20050328
  Serious: Yes (Hospitalization)
  Sender: FDA-Public Use
  Company Number: PHRM2004FR03234

PATIENT
  Age: 58 Year
  Sex: Female
  Weight: 66 kg

DRUGS (5)
  1. MEPRONIZINE [Suspect]
     Indication: SLEEP DISORDER
  2. TRILEPTAL [Suspect]
     Indication: BIPOLAR I DISORDER
     Dosage: UNK, UNK
     Route: 048
     Dates: start: 20040901
  3. SERESTA [Concomitant]
     Indication: ANXIETY
  4. BISOPROLOL FUMARATE [Concomitant]
     Indication: HYPERTENSION
  5. TERALITHE [Suspect]
     Indication: BIPOLAR DISORDER
     Dosage: 600 MG DAILY
     Route: 048
     Dates: start: 20040901, end: 20041026

REACTIONS (11)
  - ANOREXIA [None]
  - ANTIPSYCHOTIC DRUG LEVEL ABOVE THERAPEUTIC [None]
  - BALANCE DISORDER [None]
  - CONFUSIONAL STATE [None]
  - DISORIENTATION [None]
  - DISTURBANCE IN ATTENTION [None]
  - DRUG INTERACTION [None]
  - DYSARTHRIA [None]
  - MEDICAL DIET [None]
  - TREMOR [None]
  - VERTIGO [None]
